FAERS Safety Report 9524735 (Version 1)
Quarter: 2013Q1

REPORT INFORMATION
  Report Type: Spontaneous
  Country: US (occurrence: None)
  Receive Date: 20130305
  Receipt Date: 20130305
  Transmission Date: 20140127
  Serious: Yes (Hospitalization)
  Sender: FDA-Public Use
  Company Number: 163-21880-12021895

PATIENT
  Age: 76 Year
  Sex: Female
  Weight: 81.65 kg

DRUGS (13)
  1. REVLIMID (LENALIDOMIDE) (25 MILLIGRAM, CAPSULES) [Suspect]
     Indication: PLASMA CELL MYELOMA
     Route: 048
     Dates: start: 20090529, end: 200912
  2. ACIDOPHILUS (LACTOBACILLUS ACIDOPHILUS) [Concomitant]
  3. ASPIRIN (ACETYLSALICYLIC ACID) [Concomitant]
  4. CARVEDILOL [Concomitant]
  5. CHOLESTYRAMINE [Concomitant]
  6. BENTYL (DICYCLOVERINE HYDROCHLORIDE) [Concomitant]
  7. LASIX (FUROSEMIDE) [Concomitant]
  8. HYDROCODONE [Concomitant]
  9. INSULIN [Concomitant]
  10. LEXAPRO (ESCITALOPRAM OXALATE) [Concomitant]
  11. SLOW-MAG (MAGNESIUM CHLORIDE ANHYDROUS) [Concomitant]
  12. TUMS (CALCIUM CARBONATE) [Concomitant]
  13. DEXAMETHASONE [Concomitant]

REACTIONS (3)
  - Diarrhoea [None]
  - Dehydration [None]
  - Pneumonia [None]
